FAERS Safety Report 4347607-8 (Version None)
Quarter: 2004Q2

REPORT INFORMATION
  Report Type: 
  Country: None (occurrence: None)
  Receive Date: 20040422
  Receipt Date: 20040412
  Transmission Date: 20050107
  Serious: Yes (Hospitalization, Other)
  Sender: FDA-Public Use
  Company Number: 2004025068

PATIENT
  Age: 45 Year
  Sex: Female
  Weight: 58.9676 kg

DRUGS (8)
  1. LIPITOR [Suspect]
     Indication: BLOOD CHOLESTEROL
     Dosage: 20 MG (DAILY), ORAL
     Route: 048
     Dates: start: 20030501, end: 20040410
  2. INSULIN ASPART (INSULIN ASPART) [Concomitant]
  3. INSULIN GLARGINE (INSULIN GLARGINE) [Concomitant]
  4. ACETYLSALICYLIC ACID SRT [Concomitant]
  5. VITAMINS NOS (VITAMINS NOS) [Concomitant]
  6. ALL OTHER THERAPEUTIC PRODUCTS (ALL OTHER THERAPEUTIC PRODUCTS) [Concomitant]
  7. ATENOLOL [Concomitant]
  8. IRBESARTIN (IRBESARTAN) [Concomitant]

REACTIONS (4)
  - ABNORMAL BEHAVIOUR [None]
  - ARTERIAL BYPASS OPERATION [None]
  - DISSOCIATION [None]
  - NASOPHARYNGITIS [None]
